FAERS Safety Report 7693765-7 (Version None)
Quarter: 2011Q3

REPORT INFORMATION
  Report Type: 
  Country: None (occurrence: None)
  Receive Date: 20110819
  Receipt Date: 20110812
  Transmission Date: 20111222
  Serious: Yes (Other)
  Sender: FDA-Public Use
  Company Number: US-JNJFOC-20110807458

PATIENT
  Sex: Male
  Weight: 75.75 kg

DRUGS (2)
  1. METHADONE HYDROCHLORIDE [Suspect]
     Indication: BREAKTHROUGH PAIN
     Route: 048
  2. DURAGESIC-100 [Suspect]
     Indication: PAIN
     Route: 062
     Dates: start: 20110501

REACTIONS (4)
  - FEELING ABNORMAL [None]
  - BIPOLAR DISORDER [None]
  - DRUG WITHDRAWAL SYNDROME [None]
  - ANXIETY [None]
